FAERS Safety Report 8547732 (Version 5)
Quarter: 2013Q3

REPORT INFORMATION
  Report Type: Spontaneous
  Country: IE (occurrence: IE)
  Receive Date: 20120504
  Receipt Date: 20130702
  Transmission Date: 20140515
  Serious: Yes (Hospitalization, Other)
  Sender: FDA-Public Use
  Company Number: IE-ROCHE-1065276

PATIENT
  Age: 24 Year
  Sex: Male

DRUGS (1)
  1. ROACCUTANE [Suspect]
     Indication: ACNE
     Dosage: DURATION OF DRUG: 9 DAYS
     Route: 048
     Dates: start: 199805

REACTIONS (22)
  - Ulcerative keratitis [Recovered/Resolved]
  - Keratitis [Recovered/Resolved]
  - Depression [Recovered/Resolved]
  - Swelling face [Recovered/Resolved]
  - Local swelling [Recovered/Resolved]
  - Headache [Not Recovered/Not Resolved]
  - Fatigue [Not Recovered/Not Resolved]
  - Affect lability [Unknown]
  - Myalgia [Unknown]
  - Arthralgia [Unknown]
  - Aggression [Unknown]
  - Crying [Not Recovered/Not Resolved]
  - Sleep disorder [Not Recovered/Not Resolved]
  - Abulia [Not Recovered/Not Resolved]
  - Insomnia [Not Recovered/Not Resolved]
  - Malaise [Unknown]
  - Asthenia [Unknown]
  - Mental impairment [Not Recovered/Not Resolved]
  - Learning disorder [Not Recovered/Not Resolved]
  - Disturbance in attention [Not Recovered/Not Resolved]
  - Memory impairment [Not Recovered/Not Resolved]
  - Nervous system disorder [Not Recovered/Not Resolved]
